FAERS Safety Report 14848759 (Version 1)
Quarter: 2018Q2

REPORT INFORMATION
  Report Type: Spontaneous
  Country: IT (occurrence: IT)
  Receive Date: 20180504
  Receipt Date: 20180504
  Transmission Date: 20180711
  Serious: Yes (Hospitalization, Other)
  Sender: FDA-Public Use
  Company Number: IT-MYLANLABS-2018M1029076

PATIENT
  Age: 36 Year
  Sex: Female

DRUGS (1)
  1. DOXORUBICIN [Suspect]
     Active Substance: DOXORUBICIN
     Indication: OSTEOSARCOMA
     Route: 065

REACTIONS (10)
  - Cardiac failure acute [Recovering/Resolving]
  - Right ventricular dysfunction [Recovering/Resolving]
  - Generalised oedema [Recovering/Resolving]
  - Mitral valve incompetence [Recovering/Resolving]
  - Ejection fraction decreased [Recovering/Resolving]
  - Cardiotoxicity [Recovering/Resolving]
  - Congestive cardiomyopathy [Recovering/Resolving]
  - Tricuspid valve incompetence [Recovering/Resolving]
  - Ventricular remodelling [Recovering/Resolving]
  - Acute hepatic failure [Recovering/Resolving]

NARRATIVE: CASE EVENT DATE: 2014
